FAERS Safety Report 20602001 (Version 1)
Quarter: 2022Q1

REPORT INFORMATION
  Report Type: Spontaneous
  Country: TR (occurrence: TR)
  Receive Date: 20220316
  Receipt Date: 20220316
  Transmission Date: 20220424
  Serious: Yes (Other)
  Sender: FDA-Public Use
  Company Number: TR-AMERICAN REGENT INC-2022000623

PATIENT
  Age: 87 Year
  Sex: Female
  Weight: 63 kg

DRUGS (5)
  1. FERINJECT [Suspect]
     Active Substance: FERRIC CARBOXYMALTOSE
     Indication: Blood iron decreased
     Dosage: 500 MILLIGRAM (10 ML)
     Route: 042
     Dates: start: 20220215, end: 20220215
  2. METHYLPREDNISOLONE [Concomitant]
     Active Substance: METHYLPREDNISOLONE
     Indication: Product used for unknown indication
     Dosage: 80 MILLIGRAM
     Route: 065
  3. AVIL [PHENIRAMINE MALEATE] [Concomitant]
     Indication: Product used for unknown indication
     Dosage: UNK, AMPOULES
     Route: 065
  4. IPRATOM [Concomitant]
     Indication: Product used for unknown indication
     Dosage: VIAL
     Route: 065
  5. LASIX [Concomitant]
     Active Substance: FUROSEMIDE
     Indication: Product used for unknown indication
     Dosage: UNK, AMPOULES
     Route: 065

REACTIONS (2)
  - Bronchospasm [Recovered/Resolved]
  - Cough [Recovered/Resolved]

NARRATIVE: CASE EVENT DATE: 20220215
